FAERS Safety Report 4629079-9 (Version None)
Quarter: 2005Q2

REPORT INFORMATION
  Report Type: 
  Country: None (occurrence: None)
  Receive Date: 20050407
  Receipt Date: 20050224
  Transmission Date: 20051028
  Serious: Yes (Other)
  Sender: FDA-Public Use
  Company Number: JP-GLAXOSMITHKLINE-B0373039A

PATIENT
  Age: 66 Year
  Sex: Male

DRUGS (4)
  1. PAXIL [Suspect]
     Indication: DEPRESSION
     Route: 048
     Dates: start: 20050201, end: 20050301
  2. DEPAKENE [Concomitant]
     Route: 048
     Dates: start: 20050220
  3. ROHYPNOL [Concomitant]
     Route: 048
     Dates: start: 20050201
  4. VALPROATE SODIUM [Concomitant]
     Dates: start: 20050220

REACTIONS (2)
  - DELUSION [None]
  - MANIA [None]
